FAERS Safety Report 13348065 (Version 3)
Quarter: 2017Q3

REPORT INFORMATION
  Report Type: Report from Study
  Country: None (occurrence: US)
  Receive Date: 20170318
  Receipt Date: 20170918
  Transmission Date: 20171127
  Serious: Yes (Hospitalization, Other)
  Sender: FDA-Public Use
  Company Number: US-ABBVIE-17K-163-1906636-00

PATIENT
  Age: 49 Year
  Sex: Female

DRUGS (2)
  1. HUMIRA [Suspect]
     Active Substance: ADALIMUMAB
     Route: 058
  2. HUMIRA [Suspect]
     Active Substance: ADALIMUMAB
     Indication: COLITIS ULCERATIVE
     Route: 058
     Dates: start: 201701

REACTIONS (11)
  - Protein total decreased [Unknown]
  - White blood cell count decreased [Unknown]
  - Colitis ulcerative [Recovered/Resolved]
  - Blood electrolytes decreased [Unknown]
  - Hot flush [Not Recovered/Not Resolved]
  - Localised infection [Unknown]
  - Sinusitis [Recovering/Resolving]
  - Nail disorder [Unknown]
  - Colitis ulcerative [Unknown]
  - Therapeutic response shortened [Unknown]
  - Diarrhoea [Recovered/Resolved]

NARRATIVE: CASE EVENT DATE: 2017
